FAERS Safety Report 8236065-9 (Version None)
Quarter: 2012Q1

REPORT INFORMATION
  Report Type: 
  Country: None (occurrence: None)
  Receive Date: 20120327
  Receipt Date: 20120313
  Transmission Date: 20120608
  Serious: Yes (Other)
  Sender: FDA-Public Use
  Company Number: BR-AMGEN-BRASP2012017749

PATIENT
  Age: 50 Year
  Sex: Female
  Weight: 62 kg

DRUGS (7)
  1. ENBREL [Suspect]
     Indication: RHEUMATOID ARTHRITIS
     Dosage: 50 MG, 1X/WEEK
     Route: 058
     Dates: start: 20120101
  2. CALCIUM CARBONATE [Concomitant]
     Dosage: UNK
  3. OMEPRAZOLE [Concomitant]
     Dosage: 20 MG UNK
  4. METHOTREXATE [Concomitant]
     Dosage: 12.5 MG, WEEKLY (5 TABLETS OF 2.5 MG, 1X/WEEK)
  5. DORAGON RESINAT [Concomitant]
     Indication: PAIN
     Dosage: UNK
  6. DORFLEX [Concomitant]
     Indication: PAIN
     Dosage: UNK
  7. PREDNISONE TAB [Concomitant]
     Dosage: UNK

REACTIONS (8)
  - PAIN [None]
  - MENOPAUSE [None]
  - ARTHRITIS [None]
  - ARTHRALGIA [None]
  - INJECTION SITE PAIN [None]
  - PAIN IN EXTREMITY [None]
  - SWELLING [None]
  - WEIGHT INCREASED [None]
